FAERS Safety Report 4887695-3 (Version None)
Quarter: 2006Q1

REPORT INFORMATION
  Report Type: 
  Country: None (occurrence: None)
  Receive Date: 20060119
  Receipt Date: 20060119
  Transmission Date: 20060701
  Serious: Yes (Hospitalization)
  Sender: FDA-Public Use
  Company Number: None

PATIENT
  Age: 80 Year
  Sex: Male
  Weight: 77.1115 kg

DRUGS (1)
  1. EZETIMIBE [Suspect]
     Dosage: 10 MG PO QD
     Route: 048

REACTIONS (1)
  - THROMBOCYTOPENIA [None]
